FAERS Safety Report 13596929 (Version 1)
Quarter: 2017Q2

REPORT INFORMATION
  Report Type: Spontaneous
  Country: US (occurrence: US)
  Receive Date: 20170531
  Receipt Date: 20170531
  Transmission Date: 20170830
  Serious: No
  Sender: FDA-Public Use
  Company Number: US-CELGENEUS-USA-20170402166

PATIENT
  Sex: Male

DRUGS (6)
  1. THALOMID [Suspect]
     Active Substance: THALIDOMIDE
     Indication: B-CELL LYMPHOMA
     Dosage: 100 MILLIGRAM
     Route: 048
     Dates: start: 201307
  2. XARELTO [Concomitant]
     Active Substance: RIVAROXABAN
     Indication: PRODUCT USED FOR UNKNOWN INDICATION
     Route: 065
  3. THALOMID [Suspect]
     Active Substance: THALIDOMIDE
     Indication: OFF LABEL USE
  4. THALOMID [Suspect]
     Active Substance: THALIDOMIDE
     Indication: MYELOFIBROSIS
     Dosage: 50 MILLIGRAM
     Route: 048
     Dates: start: 201507
  5. THALOMID [Suspect]
     Active Substance: THALIDOMIDE
     Indication: MYELODYSPLASTIC SYNDROME
     Dosage: 50 MILLIGRAM
     Route: 048
     Dates: start: 20150721, end: 20170322
  6. DANAZOL. [Concomitant]
     Active Substance: DANAZOL
     Indication: PRODUCT USED FOR UNKNOWN INDICATION
     Route: 065

REACTIONS (2)
  - Skin lesion [Recovering/Resolving]
  - Infection [Recovering/Resolving]
